FAERS Safety Report 4397662-4 (Version None)
Quarter: 2004Q3

REPORT INFORMATION
  Report Type: 
  Country: None (occurrence: None)
  Receive Date: 20040713
  Receipt Date: 20040625
  Transmission Date: 20050211
  Serious: Yes (Hospitalization)
  Sender: FDA-Public Use
  Company Number: WAES 0406USA02667

PATIENT
  Age: 78 Year
  Sex: Female

DRUGS (5)
  1. FOSAMAX [Suspect]
     Indication: OSTEOPOROSIS
     Dosage: 5 MG /DAILY; PO
     Route: 048
     Dates: start: 20030904, end: 20040506
  2. MERISLON [Concomitant]
  3. MOBILAT [Concomitant]
  4. SELTOUCH [Concomitant]
  5. VOLTAREN [Concomitant]

REACTIONS (1)
  - ANAEMIA [None]
